FAERS Safety Report 23510931 (Version 1)
Quarter: 2024Q1

REPORT INFORMATION
  Report Type: Spontaneous
  Country: US (occurrence: US)
  Receive Date: 20240212
  Receipt Date: 20240212
  Transmission Date: 20240410
  Serious: Yes (Death, Life-Threatening, Hospitalization, Other)
  Sender: FDA-Public Use
  Company Number: US-ENDO PHARMACEUTICALS INC-2024-000682

PATIENT
  Age: 17 Year
  Sex: Female

DRUGS (1)
  1. BUPROPION HYDROCHLORIDE [Suspect]
     Active Substance: BUPROPION HYDROCHLORIDE
     Indication: Depression
     Dosage: UNKNOWN (INGESTED APPROXIMATELY 96 TABLETS OF 150 MG BUPROPION XL (14.4G TOTAL))
     Route: 048

REACTIONS (20)
  - Completed suicide [Fatal]
  - Acute kidney injury [Unknown]
  - Cardiogenic shock [Unknown]
  - Distributive shock [Unknown]
  - Respiratory failure [Unknown]
  - Haemodynamic instability [Unknown]
  - Shock [Unknown]
  - Pleural effusion [Unknown]
  - Pulmonary hypertension [Unknown]
  - Ventricular dysfunction [Unknown]
  - Cerebral disorder [Unknown]
  - Ventricular tachycardia [Recovered/Resolved]
  - Electrocardiogram QT prolonged [Recovering/Resolving]
  - Blood creatine phosphokinase increased [Unknown]
  - Intentional overdose [Fatal]
  - Cardiac arrest [Recovered/Resolved]
  - Vomiting [Unknown]
  - Agitation [Unknown]
  - Tremor [Unknown]
  - Bradycardia [Unknown]

NARRATIVE: CASE EVENT DATE: 20220101
